FAERS Safety Report 5465848-3 (Version None)
Quarter: 2007Q3

REPORT INFORMATION
  Report Type: 
  Country: None (occurrence: None)
  Receive Date: 20070924
  Receipt Date: 20070917
  Transmission Date: 20080115
  Serious: Yes (Hospitalization)
  Sender: FDA-Public Use
  Company Number: PHEH2007US12523

PATIENT
  Age: 78 Year
  Sex: Female

DRUGS (8)
  1. TEKTURNA [Suspect]
     Indication: HYPERTENSION
     Dosage: 150 MG, QD
     Route: 048
     Dates: start: 20070731
  2. TEKTURNA [Suspect]
     Dosage: 300 MG, QD
     Route: 048
     Dates: end: 20070831
  3. ZOCOR [Concomitant]
     Dosage: 10 MG, UNK
  4. ACTONEL [Concomitant]
     Dosage: 35 MG, UNK
  5. IMDUR [Concomitant]
     Dosage: 30 MG, UNK
  6. ATENOLOL [Concomitant]
     Dosage: 25 MG, UNK
  7. BENAZEPRIL HYDROCHLORIDE [Concomitant]
     Dosage: 20 MG, UNK
  8. CARTIA XT [Concomitant]
     Dosage: 240 MG, UNK

REACTIONS (2)
  - FEELING HOT [None]
  - HYPERHIDROSIS [None]
